FAERS Safety Report 5620207-5 (Version None)
Quarter: 2008Q1

REPORT INFORMATION
  Report Type: 
  Country: None (occurrence: None)
  Receive Date: 20080208
  Receipt Date: 20080129
  Transmission Date: 20080703
  Serious: No
  Sender: FDA-Public Use
  Company Number: US-BAXTER-2008BH000458

PATIENT
  Age: 41 Year
  Sex: Male
  Weight: 87 kg

DRUGS (8)
  1. HEPARIN SODIUM [Suspect]
     Indication: THROMBOSIS PROPHYLAXIS
     Route: 040
     Dates: start: 20080108, end: 20080108
  2. HEPARIN SODIUM [Suspect]
     Route: 040
     Dates: start: 20080108, end: 20080108
  3. HEPARIN SODIUM [Suspect]
     Route: 040
     Dates: start: 20080108, end: 20080108
  4. HEPARIN SODIUM [Suspect]
     Route: 040
     Dates: start: 20080108, end: 20080108
  5. HEPARIN SODIUM [Suspect]
     Route: 042
     Dates: start: 20080108, end: 20080108
  6. HEPARIN SODIUM [Suspect]
     Route: 042
     Dates: start: 20080108, end: 20080108
  7. HEPARIN SODIUM [Suspect]
     Route: 042
     Dates: start: 20080108, end: 20080108
  8. HEPARIN SODIUM [Suspect]
     Route: 042
     Dates: start: 20080108, end: 20080108

REACTIONS (1)
  - HYPOTENSION [None]
